FAERS Safety Report 7944736-4 (Version None)
Quarter: 2011Q4

REPORT INFORMATION
  Report Type: 
  Country: None (occurrence: None)
  Receive Date: 20111114
  Receipt Date: 20110719
  Transmission Date: 20120403
  Serious: No
  Sender: FDA-Public Use
  Company Number: 1000022274

PATIENT
  Age: 54 Year
  Sex: Female

DRUGS (3)
  1. PROZAC [Suspect]
     Indication: DEPRESSION
     Dosage: 2 MG TID (2 MG, 3 IN 1 D), ORAL
     Route: 048
     Dates: start: 20101101
  2. ABILIFY (ARIPIPRAZOLE) (ARIPIPRAZOLE) [Concomitant]
  3. SAVELLA [Suspect]
     Indication: FIBROMYALGIA
     Route: 048
     Dates: start: 20100901

REACTIONS (2)
  - DEPRESSION [None]
  - OBSESSIVE THOUGHTS [None]
